FAERS Safety Report 15656758 (Version 4)
Quarter: 2019Q1

REPORT INFORMATION
  Report Type: Report from Study
  Country: US (occurrence: US)
  Receive Date: 20181126
  Receipt Date: 20190124
  Transmission Date: 20190417
  Serious: Yes (Other)
  Sender: FDA-Public Use
  Company Number: PHHY2016US083107

PATIENT
  Age: 54 Year
  Sex: Female

DRUGS (1)
  1. GILENYA [Suspect]
     Active Substance: FINGOLIMOD HYDROCHLORIDE
     Indication: MULTIPLE SCLEROSIS
     Dosage: UNK, QD
     Route: 048

REACTIONS (12)
  - Hypoaesthesia [Unknown]
  - Rash [Recovered/Resolved]
  - Haemangioma [Unknown]
  - Lentigo [Unknown]
  - Seborrhoeic keratosis [Unknown]
  - Melanocytic naevus [Recovered/Resolved]
  - Retinal telangiectasia [Unknown]
  - Fibrous histiocytoma [Unknown]
  - Non-cardiac chest pain [Recovered/Resolved]
  - Gastroenteritis [Recovered/Resolved]
  - Milia [Unknown]
  - Neoplasm skin [Unknown]

NARRATIVE: CASE EVENT DATE: 20141021
